FAERS Safety Report 7770837 (Version 2)
Quarter: 2014Q2

REPORT INFORMATION
  Report Type: Spontaneous
  Country: US (occurrence: None)
  Receive Date: 20101123
  Receipt Date: 20140514
  Transmission Date: 20141212
  Serious: Yes (Other)
  Sender: FDA-Public Use
  Company Number: 017940

PATIENT
  Sex: Female

DRUGS (6)
  1. CIMZIA [Suspect]
     Indication: CROHN^S DISEASE
     Dosage: (400 MG 1X/2 WEEKS SUBCUTANEOUS)
     Route: 058
     Dates: start: 20090703
  2. PRENATAL VITAMINS /01549301/ [Concomitant]
  3. SEROQUEL /01270901/ [Concomitant]
  4. LORATADINE [Concomitant]
  5. CELEXA /00582602/ [Concomitant]
  6. ABILIFY [Concomitant]

REACTIONS (3)
  - Pregnancy [None]
  - Fatigue [None]
  - Caesarean section [None]
